FAERS Safety Report 23237385 (Version 1)
Quarter: 2023Q4

REPORT INFORMATION
  Report Type: Spontaneous
  Country: CN (occurrence: CN)
  Receive Date: 20231128
  Receipt Date: 20231128
  Transmission Date: 20240110
  Serious: Yes (Hospitalization, Other)
  Sender: FDA-Public Use
  Company Number: CN-BAYER-2023A166498

PATIENT
  Age: 66 Year
  Sex: Male
  Weight: 56 kg

DRUGS (5)
  1. STIVARGA [Suspect]
     Active Substance: REGORAFENIB
     Indication: Rectal adenocarcinoma
     Dosage: 160 MG, QD
     Route: 048
     Dates: start: 20230926, end: 20231108
  2. STIVARGA [Suspect]
     Active Substance: REGORAFENIB
     Indication: Metastases to liver
  3. SINTILIMAB [Suspect]
     Active Substance: SINTILIMAB
     Indication: Rectal adenocarcinoma
     Dosage: 200 MG, Q1MON
     Route: 041
     Dates: start: 20230823, end: 20230926
  4. SINTILIMAB [Suspect]
     Active Substance: SINTILIMAB
     Indication: Metastases to liver
  5. FRUQUINTINIB [Concomitant]
     Active Substance: FRUQUINTINIB
     Indication: Targeted cancer therapy
     Dosage: UNK
     Route: 048
     Dates: start: 20230608

REACTIONS (2)
  - Oxygen saturation decreased [Recovered/Resolved]
  - Anaemia [Unknown]

NARRATIVE: CASE EVENT DATE: 20231024
